FAERS Safety Report 20334451 (Version 1)
Quarter: 2022Q1

REPORT INFORMATION
  Report Type: Spontaneous
  Country: TR (occurrence: TR)
  Receive Date: 20220114
  Receipt Date: 20220114
  Transmission Date: 20220423
  Serious: Yes (Other)
  Sender: FDA-Public Use
  Company Number: TR-MLMSERVICE-20180201-1057076-1

PATIENT
  Age: 2 Month

DRUGS (1)
  1. PAROXETINE [Suspect]
     Active Substance: PAROXETINE
     Indication: Major depression
     Dosage: 20 MILLIGRAM, QD
     Route: 063

REACTIONS (3)
  - Constipation neonatal [Recovered/Resolved]
  - Drug intolerance [Recovered/Resolved]
  - Exposure via breast milk [Recovered/Resolved]
